FAERS Safety Report 13819583 (Version 2)
Quarter: 2017Q3

REPORT INFORMATION
  Report Type: Spontaneous
  Country: DK (occurrence: DK)
  Receive Date: 20170801
  Receipt Date: 20170808
  Transmission Date: 20171127
  Serious: Yes (Hospitalization)
  Sender: FDA-Public Use
  Company Number: DK-JNJFOC-20170721954

PATIENT
  Sex: Male

DRUGS (1)
  1. TREVICTA [Suspect]
     Active Substance: PALIPERIDONE PALMITATE
     Indication: SCHIZOPHRENIA
     Route: 030
     Dates: start: 20170524

REACTIONS (3)
  - Renal impairment [Not Recovered/Not Resolved]
  - Drug level increased [Unknown]
  - Slow response to stimuli [Not Recovered/Not Resolved]

NARRATIVE: CASE EVENT DATE: 20170612
